FAERS Safety Report 7556550-2 (Version None)
Quarter: 2011Q2

REPORT INFORMATION
  Report Type: 
  Country: None (occurrence: None)
  Receive Date: 20110620
  Receipt Date: 20110607
  Transmission Date: 20111010
  Serious: Yes (Other)
  Sender: FDA-Public Use
  Company Number: US-TYCO HEALTHCARE/MALLINCKRODT-T201101242

PATIENT
  Age: 61 Year
  Sex: Female

DRUGS (3)
  1. OXYCODONE HCL [Suspect]
     Dosage: 5 MG EVERY 2 TO 5 HOURS
  2. OXYCODONE HCL [Suspect]
     Dosage: 15 MG EVERY 2 TO 5 HOURS
  3. OXYCODONE HCL EXTENDED-RELEASE [Suspect]
     Dosage: 60 MG, BID

REACTIONS (2)
  - DRUG ADMINISTRATION ERROR [None]
  - CARDIOMYOPATHY [None]
